FAERS Safety Report 8018644-7 (Version None)
Quarter: 2012Q1

REPORT INFORMATION
  Report Type: 
  Country: None (occurrence: None)
  Receive Date: 20120103
  Receipt Date: 20111219
  Transmission Date: 20120608
  Serious: Yes (Hospitalization)
  Sender: FDA-Public Use
  Company Number: AT-SANOFI-AVENTIS-2011SA082976

PATIENT
  Age: 65 Year
  Sex: Female
  Weight: 56 kg

DRUGS (4)
  1. DOCETAXEL [Concomitant]
     Indication: GASTRIC CANCER
  2. OXALIPLATIN [Suspect]
     Indication: GASTRIC CANCER
     Route: 042
     Dates: start: 20110824, end: 20111102
  3. BEVACIZUMAB [Concomitant]
     Indication: GASTRIC CANCER
     Route: 042
     Dates: end: 20111112
  4. CAMPTOSAR [Concomitant]
     Indication: GASTRIC CANCER
     Route: 042
     Dates: start: 20110824, end: 20111102

REACTIONS (1)
  - GASTRIC PERFORATION [None]
